FAERS Safety Report 21940218 (Version 1)
Quarter: 2023Q1

REPORT INFORMATION
  Report Type: Report from Study
  Country: US (occurrence: US)
  Receive Date: 20230201
  Receipt Date: 20230201
  Transmission Date: 20230418
  Serious: No
  Sender: FDA-Public Use
  Company Number: US-EXELIXIS-CABO-22050135

PATIENT
  Age: 49 Year
  Sex: Male

DRUGS (1)
  1. CABOMETYX [Suspect]
     Active Substance: CABOZANTINIB S-MALATE
     Indication: Renal cancer
     Dosage: 40 MG, QD
     Route: 048
     Dates: start: 20220309

REACTIONS (9)
  - Glossitis [Unknown]
  - Abdominal pain upper [Recovered/Resolved]
  - Rash [Unknown]
  - Taste disorder [Unknown]
  - Constipation [Unknown]
  - Fatigue [Unknown]
  - Headache [Unknown]
  - Weight decreased [Unknown]
  - Palmar-plantar erythrodysaesthesia syndrome [Unknown]

NARRATIVE: CASE EVENT DATE: 20220401
